FAERS Safety Report 19656721 (Version 1)
Quarter: 2021Q3

REPORT INFORMATION
  Report Type: Spontaneous
  Country: US (occurrence: US)
  Receive Date: 20210804
  Receipt Date: 20210804
  Transmission Date: 20211014
  Serious: No
  Sender: FDA-Public Use
  Company Number: US-PFIZER INC-2021592277

PATIENT
  Age: 45 Year
  Sex: Male
  Weight: 136.08 kg

DRUGS (2)
  1. VANCOMYCIN HCL [Suspect]
     Active Substance: VANCOMYCIN HYDROCHLORIDE
     Dosage: 1000 MG
  2. VANCOMYCIN HCL [Suspect]
     Active Substance: VANCOMYCIN HYDROCHLORIDE
     Dosage: 750 MG
     Route: 042
     Dates: start: 202005, end: 20200601

REACTIONS (2)
  - Therapeutic response unexpected [Unknown]
  - Blood creatinine increased [Unknown]
